FAERS Safety Report 9238740 (Version 1)
Quarter: 2013Q2

REPORT INFORMATION
  Report Type: Spontaneous
  Country: US (occurrence: None)
  Receive Date: 20130417
  Receipt Date: 20130417
  Transmission Date: 20140414
  Serious: No
  Sender: FDA-Public Use
  Company Number: None

PATIENT
  Age: 58 Year
  Sex: Female
  Weight: 55.34 kg

DRUGS (2)
  1. ATORVASTATIN 20MG [Suspect]
     Indication: HYPERLIPIDAEMIA
     Dosage: ATORVASTATIN ONCE DAILY ORAL
     Route: 048
     Dates: start: 201301
  2. SIMVASTATIN [Suspect]
     Dosage: 20MG ONCE DAILY ORAL
     Route: 048
     Dates: start: 201302

REACTIONS (2)
  - Abdominal discomfort [None]
  - Product substitution issue [None]
